FAERS Safety Report 8487392-1 (Version None)
Quarter: 2012Q2

REPORT INFORMATION
  Report Type: 
  Country: None (occurrence: None)
  Receive Date: 20120628
  Receipt Date: 20120628
  Transmission Date: 20120825
  Serious: Yes (Other)
  Sender: FDA-Public Use
  Company Number: None

PATIENT
  Sex: Female

DRUGS (2)
  1. RIBAVIRIN [Suspect]
     Indication: HEPATITIS C
     Dosage: 600 MCG TWICE A DAY BY MOUTH
     Route: 048
     Dates: start: 20110901, end: 20120501
  2. PEGASYS [Suspect]
     Indication: HEPATITIS C
     Dosage: 180 MCG WEEKLY SUBCUTANEOUSLY
     Route: 058
     Dates: start: 20110901, end: 20120501

REACTIONS (3)
  - RASH [None]
  - DYSPNOEA [None]
  - GAIT DISTURBANCE [None]
